FAERS Safety Report 18791660 (Version 1)
Quarter: 2021Q1

REPORT INFORMATION
  Report Type: Spontaneous
  Country: US (occurrence: US)
  Receive Date: 20210126
  Receipt Date: 20210126
  Transmission Date: 20210419
  Serious: No
  Sender: FDA-Public Use
  Company Number: US-PERRIGO-20US005138

PATIENT
  Sex: Female

DRUGS (2)
  1. PERMETHRIN. [Suspect]
     Active Substance: PERMETHRIN
     Indication: FUNGAL INFECTION
  2. PERMETHRIN. [Suspect]
     Active Substance: PERMETHRIN
     Indication: LICE INFESTATION
     Dosage: 1 APPLICATION, SINGLE
     Route: 061
     Dates: start: 20200326, end: 20200326

REACTIONS (5)
  - Pain of skin [Recovered/Resolved]
  - Hair growth rate abnormal [Not Recovered/Not Resolved]
  - Off label use [Recovered/Resolved]
  - Skin tightness [Recovering/Resolving]
  - Hair texture abnormal [Not Recovered/Not Resolved]

NARRATIVE: CASE EVENT DATE: 20200326
